FAERS Safety Report 8991417 (Version 1)
Quarter: 2012Q4

REPORT INFORMATION
  Report Type: 
  Country: US (occurrence: US)
  Receive Date: 20121229
  Receipt Date: 20121229
  Transmission Date: 20130627
  Serious: No
  Sender: FDA-Public Use
  Company Number: US-009507513-1203USA00490

PATIENT
  Sex: Male

DRUGS (3)
  1. COZAAR [Suspect]
     Indication: HYPERTENSION
     Dosage: 50 mg, qd
     Route: 048
     Dates: start: 2009
  2. ASPIRIN [Concomitant]
  3. VITAMINS (UNSPECIFIED) [Concomitant]

REACTIONS (2)
  - Influenza like illness [Recovering/Resolving]
  - Product formulation issue [Unknown]
